FAERS Safety Report 5142000-2 (Version None)
Quarter: 2006Q4

REPORT INFORMATION
  Report Type: 
  Country: None (occurrence: None)
  Receive Date: 20061102
  Receipt Date: 20061024
  Transmission Date: 20070319
  Serious: Yes (Disabling, Other)
  Sender: FDA-Public Use
  Company Number: SE-JNJFOC-20060302514

PATIENT
  Age: 62 Year
  Sex: Female

DRUGS (5)
  1. INFLIXIMAB [Suspect]
     Dosage: 5TH INFUSION.
     Route: 042
  2. INFLIXIMAB [Suspect]
     Dosage: 4TH INFUSION.
     Route: 042
  3. INFLIXIMAB [Suspect]
     Indication: RHEUMATOID ARTHRITIS
     Dosage: A SECOND INFUSION WAS ADMINISTERED AFTER 2 WEEKS, AND A THIRD AFTER 6 WEEKS.
     Route: 042
  4. METHOTREXATE [Concomitant]
  5. PREDISOLONE [Concomitant]

REACTIONS (4)
  - ARTHRITIS [None]
  - LUNG INFILTRATION [None]
  - OPPORTUNISTIC INFECTION [None]
  - PUSTULAR PSORIASIS [None]
